FAERS Safety Report 5824450-1 (Version None)
Quarter: 2008Q3

REPORT INFORMATION
  Report Type: 
  Country: None (occurrence: None)
  Receive Date: 20080728
  Receipt Date: 20080717
  Transmission Date: 20090109
  Serious: Yes (Other)
  Sender: FDA-Public Use
  Company Number: B0529581A

PATIENT
  Age: 65 Year
  Sex: Female

DRUGS (5)
  1. MELPHALAN [Suspect]
     Indication: BONE MARROW TRANSPLANT
     Dosage: 140MGM2 PER DAY
     Route: 042
  2. VANCOMYCIN HYDROCHLORIDE [Concomitant]
     Dosage: 2G PER DAY
     Route: 048
  3. VINCRISTINE [Concomitant]
     Route: 065
  4. DOXORUBICIN [Concomitant]
     Route: 065
  5. DEXAMETHASONE [Concomitant]
     Route: 065

REACTIONS (1)
  - GASTROINTESTINAL MUCOSAL DISORDER [None]
